FAERS Safety Report 9454226 (Version 1)
Quarter: 2013Q3

REPORT INFORMATION
  Report Type: Spontaneous
  Country: US (occurrence: None)
  Receive Date: 20130809
  Receipt Date: 20130809
  Transmission Date: 20140515
  Serious: Yes (Other)
  Sender: FDA-Public Use
  Company Number: None

PATIENT
  Age: 33 Year
  Sex: Male
  Weight: 65.77 kg

DRUGS (2)
  1. GABAPENTIN [Suspect]
     Indication: NEURALGIA
     Dosage: 3 FOUR TIMES DAILY TAKEN BY MOUTH
     Route: 048
  2. GABAPENTIN [Suspect]
     Indication: PROCEDURAL PAIN
     Dosage: 3 FOUR TIMES DAILY TAKEN BY MOUTH
     Route: 048

REACTIONS (3)
  - Tic [None]
  - Muscle spasms [None]
  - Headache [None]
